FAERS Safety Report 11860906 (Version 2)
Quarter: 2016Q1

REPORT INFORMATION
  Report Type: Spontaneous
  Country: IL (occurrence: IL)
  Receive Date: 20151222
  Receipt Date: 20160126
  Transmission Date: 20160526
  Serious: Yes (Hospitalization)
  Sender: FDA-Public Use
  Company Number: IL-BAYER-2015-490254

PATIENT
  Age: 83 Year
  Sex: Male

DRUGS (2)
  1. XOFIGO [Suspect]
     Active Substance: RADIUM RA-223 DICHLORIDE
     Indication: PROSTATE CANCER METASTATIC
     Dosage: 50KBQ/KG
     Dates: start: 20150723
  2. XOFIGO [Suspect]
     Active Substance: RADIUM RA-223 DICHLORIDE
     Indication: PROSTATE CANCER METASTATIC
     Dosage: 50KBQ/KG
     Dates: start: 20151207

REACTIONS (2)
  - Tumour haemorrhage [Recovered/Resolved]
  - Nephrostomy [Recovered/Resolved]

NARRATIVE: CASE EVENT DATE: 2015
